FAERS Safety Report 7999774-2 (Version None)
Quarter: 2011Q4

REPORT INFORMATION
  Report Type: 
  Country: None (occurrence: None)
  Receive Date: 20111222
  Receipt Date: 20111215
  Transmission Date: 20120403
  Serious: Yes (Hospitalization)
  Sender: FDA-Public Use
  Company Number: US-BIOGENIDEC-2011BI015186

PATIENT
  Age: 63 Year
  Sex: Female
  Weight: 62 kg

DRUGS (17)
  1. IBUPROFEN (ADVIL) [Concomitant]
  2. FEXOFENADINE [Concomitant]
  3. NEXIUM [Concomitant]
     Indication: GASTROOESOPHAGEAL REFLUX DISEASE
     Dates: start: 20090716
  4. BONIVA [Concomitant]
     Indication: OSTEOPOROSIS
     Dates: start: 20090716
  5. MULTIPLE VITAMIN [Concomitant]
     Route: 048
  6. CITRUCEL [Concomitant]
     Indication: CONSTIPATION
     Dates: start: 20090716
  7. TYSABRI [Suspect]
     Indication: MULTIPLE SCLEROSIS
     Route: 042
     Dates: start: 20070613
  8. ADVAIR DISKUS 100/50 [Concomitant]
     Route: 055
  9. CALCIUM CARBONATE [Concomitant]
     Route: 048
  10. SANCTURA [Concomitant]
     Route: 048
  11. SINGULAIR [Concomitant]
     Route: 048
  12. TROSPIUM CHLORIDE [Concomitant]
     Indication: NEUROGENIC BLADDER
     Dates: start: 20101011
  13. CITRACAL [Concomitant]
  14. ADVAIR DISKUS 100/50 [Concomitant]
     Route: 055
  15. COLACE [Concomitant]
     Route: 048
  16. CRANBERRY [Concomitant]
     Route: 048
  17. ZANAFLEX [Concomitant]
     Indication: MUSCLE SPASTICITY
     Route: 048
     Dates: start: 20070312

REACTIONS (1)
  - ADENOCARCINOMA [None]
